FAERS Safety Report 17017158 (Version 1)
Quarter: 2019Q4

REPORT INFORMATION
  Report Type: Spontaneous
  Country: US (occurrence: US)
  Receive Date: 20191004
  Receipt Date: 20191004
  Transmission Date: 20200122
  Serious: Yes (Hospitalization)
  Sender: FDA-Public Use
  Company Number: None

PATIENT
  Age: 60 Year
  Sex: Female
  Weight: 80.7 kg

DRUGS (1)
  1. TAXOL [Suspect]
     Active Substance: PACLITAXEL
     Dates: end: 20190917

REACTIONS (6)
  - Acute kidney injury [None]
  - Catheter site haemorrhage [None]
  - Hyponatraemia [None]
  - Ascites [None]
  - Hyperkalaemia [None]
  - Tachycardia [None]

NARRATIVE: CASE EVENT DATE: 20190924
